FAERS Safety Report 10243837 (Version 1)
Quarter: 2014Q1

REPORT INFORMATION
  Report Type: Spontaneous
  Country: US (occurrence: None)
  Receive Date: 20140306
  Receipt Date: 20140306
  Transmission Date: 20141002
  Serious: Yes (Life-Threatening, Hospitalization, Disabling)
  Sender: FDA-Public Use
  Company Number: 163-21880-13114016

PATIENT
  Age: 85 Year
  Sex: Female

DRUGS (1)
  1. REVLIMID (LENALIDOMIDE) (5 MILLIGRAM, CAPSULES) [Suspect]
     Indication: MYELODYSPLASTIC SYNDROME
     Dosage: 5 MG, 21 IN 21 D, PO?01-OCT-2013 - TEMPORARILY INTERRUPTED
     Route: 048
     Dates: start: 20131001

REACTIONS (2)
  - Cardiac failure congestive [None]
  - Jaundice [None]
